FAERS Safety Report 5007648-4 (Version None)
Quarter: 2006Q2

REPORT INFORMATION
  Report Type: 
  Country: None (occurrence: None)
  Receive Date: 20060522
  Receipt Date: 20060512
  Transmission Date: 20061013
  Serious: Yes (Hospitalization)
  Sender: FDA-Public Use
  Company Number: CA-BRISTOL-MYERS SQUIBB COMPANY-13377908

PATIENT
  Age: 70 Year
  Sex: Female

DRUGS (10)
  1. COUMADIN [Suspect]
     Indication: MITRAL VALVE REPLACEMENT
     Dosage: 4 MG 3 DAYS / WEEK AND 6 MG 4 DAYS / WEEK
     Dates: start: 19790101
  2. COUMADIN [Interacting]
     Indication: ATRIAL FIBRILLATION
     Dosage: 4 MG 3 DAYS / WEEK AND 6 MG 4 DAYS / WEEK
     Dates: start: 19790101
  3. CHAMOMILE [Interacting]
     Indication: OEDEMA PERIPHERAL
     Dosage: APPLIED ONE TEASPOON SIZED DOLLOP TO EACH LEG 4-5 TIMES DAILY FOR PEDAL EDEMA AND 4-5 CUPS OF TEA
  4. CHAMOMILE [Interacting]
     Indication: PHARYNGOLARYNGEAL PAIN
     Dosage: APPLIED ONE TEASPOON SIZED DOLLOP TO EACH LEG 4-5 TIMES DAILY FOR PEDAL EDEMA AND 4-5 CUPS OF TEA
  5. AMIODARONE HCL [Concomitant]
  6. DIGOXIN [Concomitant]
  7. SYNTHROID [Concomitant]
  8. ALENDRONATE SODIUM [Concomitant]
  9. METOPROLOL TARTRATE [Concomitant]
  10. CALCIUM + VITAMIN D [Concomitant]

REACTIONS (4)
  - DRUG INTERACTION [None]
  - OEDEMA PERIPHERAL [None]
  - RETROPERITONEAL HAEMATOMA [None]
  - UPPER RESPIRATORY TRACT INFECTION [None]
